FAERS Safety Report 16876618 (Version 1)
Quarter: 2019Q4

REPORT INFORMATION
  Report Type: Report from Study
  Country: US (occurrence: US)
  Receive Date: 20191002
  Receipt Date: 20191002
  Transmission Date: 20200122
  Serious: Yes (Other)
  Sender: FDA-Public Use
  Company Number: US-ROCHE-2420616

PATIENT
  Sex: Female

DRUGS (1)
  1. OCREVUS [Suspect]
     Active Substance: OCRELIZUMAB
     Indication: RELAPSING MULTIPLE SCLEROSIS
     Route: 042
     Dates: start: 20180111

REACTIONS (4)
  - Pharyngitis [Unknown]
  - Bronchitis [Unknown]
  - Pneumonia [Unknown]
  - Enteritis infectious [Unknown]

NARRATIVE: CASE EVENT DATE: 2019
